FAERS Safety Report 7202477-5 (Version None)
Quarter: 2010Q4

REPORT INFORMATION
  Report Type: 
  Country: None (occurrence: None)
  Receive Date: 20101229
  Receipt Date: 20101220
  Transmission Date: 20110411
  Serious: Yes (Hospitalization)
  Sender: FDA-Public Use
  Company Number: B0690840A

PATIENT
  Sex: Female
  Weight: 51 kg

DRUGS (64)
  1. ALKERAN [Suspect]
     Indication: STEM CELL TRANSPLANT
     Dosage: 200MGM2 PER DAY
     Route: 042
     Dates: start: 20100326, end: 20100326
  2. NEUTROGIN [Concomitant]
     Dosage: 250MCG PER DAY
     Dates: start: 20100330, end: 20100409
  3. DIOVAN [Concomitant]
     Dosage: 80MG PER DAY
     Route: 048
     Dates: start: 20100324, end: 20100329
  4. SERENACE [Concomitant]
     Dosage: .75MG PER DAY
     Route: 048
     Dates: start: 20100324, end: 20100329
  5. VANCOMYCIN [Concomitant]
     Dates: start: 20100404, end: 20100404
  6. PARIET [Concomitant]
     Dosage: 10MG PER DAY
     Route: 048
     Dates: start: 20100324, end: 20100329
  7. LENDORMIN [Concomitant]
     Dosage: .25MG PER DAY
     Route: 048
     Dates: start: 20100324, end: 20100329
  8. ITRIZOLE [Concomitant]
     Dosage: 20ML PER DAY
     Route: 048
     Dates: start: 20100324, end: 20100329
  9. ZOVIRAX [Concomitant]
     Dosage: 1G PER DAY
     Route: 048
     Dates: start: 20100324, end: 20100329
  10. GABAPENTIN [Concomitant]
     Dosage: 400MG PER DAY
     Route: 048
     Dates: start: 20100324, end: 20100324
  11. LOXONIN [Concomitant]
     Dosage: 180MG PER DAY
     Route: 048
     Dates: start: 20100324, end: 20100324
  12. MAGNESIUM OXIDE [Concomitant]
     Dosage: 2.01G PER DAY
     Route: 048
     Dates: start: 20100324, end: 20100329
  13. FLAGYL [Concomitant]
     Dosage: 1500MG PER DAY
     Route: 048
     Dates: start: 20100402, end: 20100408
  14. NAUZELIN [Concomitant]
     Dosage: 30MG PER DAY
     Route: 048
     Dates: start: 20100324, end: 20100329
  15. AMIKACIN SULFATE [Concomitant]
     Dosage: 15MG PER DAY
     Route: 048
     Dates: start: 20100324, end: 20100329
  16. VANCOMYCIN HYDROCHLORIDE [Concomitant]
     Dosage: 2000MG PER DAY
     Route: 048
     Dates: start: 20100402, end: 20100405
  17. FRANDOL S [Concomitant]
     Dosage: 40MG PER DAY
     Route: 062
     Dates: start: 20100329, end: 20100418
  18. POSTERISAN [Concomitant]
     Dosage: 2G PER DAY
     Route: 054
     Dates: start: 20100401, end: 20100401
  19. VOLTAREN [Concomitant]
     Dosage: 75MG PER DAY
     Route: 054
     Dates: start: 20100326, end: 20100403
  20. HACHIAZULE [Concomitant]
     Dosage: 2MG PER DAY
     Route: 002
     Dates: start: 20100328, end: 20100329
  21. DUROTEP [Concomitant]
     Route: 062
     Dates: start: 20100325, end: 20100421
  22. NAUZELIN [Concomitant]
     Route: 054
     Dates: start: 20100329, end: 20100403
  23. LAXOBERON [Concomitant]
     Route: 048
     Dates: start: 20100324, end: 20100324
  24. PHYSIO 35 [Concomitant]
     Dosage: 1000ML PER DAY
     Route: 042
     Dates: start: 20100324, end: 20100324
  25. PHYSIO 35 [Concomitant]
     Dosage: 500ML PER DAY
     Route: 042
     Dates: start: 20100325, end: 20100325
  26. SOLDEM 3A [Concomitant]
     Dosage: 1000ML PER DAY
     Route: 042
     Dates: start: 20100324, end: 20100421
  27. SOLDEM 3A [Concomitant]
     Dosage: 500ML PER DAY
     Route: 042
     Dates: start: 20100422, end: 20100422
  28. PANTOL [Concomitant]
     Dosage: 500MG PER DAY
     Dates: start: 20100327, end: 20100401
  29. MEYLON [Concomitant]
     Dosage: 40ML PER DAY
     Route: 042
     Dates: start: 20100324, end: 20100401
  30. MEYLON [Concomitant]
     Dosage: 20ML PER DAY
     Route: 042
     Dates: start: 20100402, end: 20100409
  31. OMEPRAL [Concomitant]
     Dosage: 40MG PER DAY
     Route: 042
     Dates: start: 20100324, end: 20100416
  32. MORPHINE HYDROCHLORIDE [Concomitant]
     Dosage: 10MG PER DAY
     Dates: start: 20100324, end: 20100330
  33. MORPHINE HYDROCHLORIDE [Concomitant]
     Dosage: 12MG PER DAY
     Dates: start: 20100331, end: 20100331
  34. MORPHINE HYDROCHLORIDE [Concomitant]
     Dosage: 10MG PER DAY
     Dates: start: 20100401, end: 20100404
  35. MORPHINE HYDROCHLORIDE [Concomitant]
     Dosage: 20MG PER DAY
     Dates: start: 20100405, end: 20100405
  36. MORPHINE HYDROCHLORIDE [Concomitant]
     Dosage: 40MG PER DAY
     Dates: start: 20100406, end: 20100406
  37. MORPHINE HYDROCHLORIDE [Concomitant]
     Dosage: 30MG PER DAY
     Dates: start: 20100407, end: 20100409
  38. MORPHINE HYDROCHLORIDE [Concomitant]
     Dosage: 10MG PER DAY
     Dates: start: 20100411, end: 20100413
  39. OLIVE LEAF [Concomitant]
     Dosage: 480MG PER DAY
     Dates: start: 20100324, end: 20100416
  40. UNKNOWN MEDICATION [Concomitant]
     Dosage: 1000ML PER DAY
     Route: 042
     Dates: start: 20100325, end: 20100408
  41. SEROTONE [Concomitant]
     Dosage: 10MG PER DAY
     Route: 042
     Dates: start: 20100326, end: 20100326
  42. FUROSEMIDE [Concomitant]
     Dosage: 20MG PER DAY
     Route: 042
     Dates: start: 20100326, end: 20100326
  43. GRANISETRON HCL [Concomitant]
     Dosage: 3MG PER DAY
     Route: 042
     Dates: start: 20100326, end: 20100326
  44. VICCLOX [Concomitant]
     Dosage: 250MG PER DAY
     Route: 042
     Dates: start: 20100326, end: 20100326
  45. VICCLOX [Concomitant]
     Dosage: 500MG PER DAY
     Route: 042
     Dates: start: 20100327, end: 20100421
  46. VICCLOX [Concomitant]
     Dosage: 250MG PER DAY
     Route: 042
     Dates: start: 20100422, end: 20100422
  47. VENOGLOBULIN [Concomitant]
     Dosage: 2.5MG PER DAY
     Route: 042
     Dates: start: 20100326, end: 20100327
  48. PRIMPERAN TAB [Concomitant]
     Dosage: 10MG PER DAY
     Route: 042
     Dates: start: 20100326, end: 20100327
  49. PRIMPERAN TAB [Concomitant]
     Dosage: 10MG PER DAY
     Route: 042
     Dates: start: 20100419, end: 20100419
  50. HEPARIN SODIUM [Concomitant]
     Dosage: 5ML PER DAY
     Route: 042
     Dates: start: 20100328, end: 20100328
  51. SODIUM CHLORIDE [Concomitant]
     Dosage: 20ML PER DAY
     Route: 042
     Dates: start: 20100329, end: 20100330
  52. HAPTOGLOBIN [Concomitant]
     Dosage: 200ML PER DAY
     Route: 042
     Dates: start: 20100329, end: 20100329
  53. POTASSIUM CHLORIDE [Concomitant]
     Dosage: 20MEQ PER DAY
     Route: 042
     Dates: start: 20100331, end: 20100421
  54. METILON [Concomitant]
     Dosage: 500MG PER DAY
     Dates: start: 20100401, end: 20100401
  55. METILON [Concomitant]
     Dosage: 250MG PER DAY
     Dates: start: 20100402, end: 20100404
  56. MEROPENEM [Concomitant]
     Dosage: 2G PER DAY
     Route: 042
     Dates: start: 20100401, end: 20100412
  57. VANCOMYCIN [Concomitant]
     Dosage: .5G PER DAY
     Route: 042
     Dates: start: 20100403, end: 20100403
  58. VANCOMYCIN [Concomitant]
     Dosage: 1G PER DAY
     Route: 042
     Dates: start: 20100404, end: 20100404
  59. VANCOMYCIN [Concomitant]
     Dosage: 1G PER DAY
     Route: 042
     Dates: start: 20100405, end: 20100412
  60. FLURBIPROFEN [Concomitant]
     Dosage: 50MG PER DAY
     Route: 042
     Dates: start: 20100406, end: 20100412
  61. UNKNOWN MEDICATION [Concomitant]
     Dosage: 1000ML PER DAY
     Route: 042
     Dates: start: 20100409, end: 20100420
  62. CONCENTRATED RED BLOOD CELLS [Concomitant]
     Dosage: 2IUAX PER DAY
     Dates: start: 20100324, end: 20100324
  63. CONCENTRATED RED BLOOD CELLS [Concomitant]
     Dosage: 2IUAX PER DAY
     Dates: start: 20100401, end: 20100401
  64. FUNGUARD [Concomitant]
     Dosage: 50MG PER DAY
     Route: 042
     Dates: start: 20100402, end: 20100409

REACTIONS (5)
  - DIARRHOEA [None]
  - FEBRILE NEUTROPENIA [None]
  - PSEUDOMEMBRANOUS COLITIS [None]
  - STOMATITIS [None]
  - URINE OUTPUT DECREASED [None]
